FAERS Safety Report 24274652 (Version 1)
Quarter: 2024Q3

REPORT INFORMATION
  Report Type: Spontaneous
  Country: CN (occurrence: CN)
  Receive Date: 20240902
  Receipt Date: 20240902
  Transmission Date: 20241016
  Serious: Yes (Hospitalization, Other)
  Sender: ABBVIE
  Company Number: CN-ABBVIE-5898375

PATIENT
  Age: 60 Year
  Sex: Female
  Weight: 42 kg

DRUGS (1)
  1. VENETOCLAX [Suspect]
     Active Substance: VENETOCLAX
     Indication: White blood cell count increased
     Dosage: 100 MILLIGRAM
     Route: 048
     Dates: start: 20240821, end: 20240825

REACTIONS (2)
  - Neutropenia [Not Recovered/Not Resolved]
  - White blood cell count increased [Unknown]

NARRATIVE: CASE EVENT DATE: 20240801
